FAERS Safety Report 9381661 (Version 1)
Quarter: 2013Q3

REPORT INFORMATION
  Report Type: Spontaneous
  Country: DE (occurrence: DE)
  Receive Date: 20130703
  Receipt Date: 20130703
  Transmission Date: 20140515
  Serious: Yes (Hospitalization)
  Sender: FDA-Public Use
  Company Number: DE-PFIZER INC-2013180318

PATIENT
  Age: 62 Year
  Sex: Female

DRUGS (2)
  1. LATANOPROST [Suspect]
  2. AZARGA [Suspect]
     Dosage: UNK
     Dates: start: 2013

REACTIONS (3)
  - Appendicitis [Unknown]
  - Inguinal hernia [Unknown]
  - Restless legs syndrome [Unknown]
